FAERS Safety Report 5823042-8 (Version None)
Quarter: 2008Q3

REPORT INFORMATION
  Report Type: 
  Country: None (occurrence: None)
  Receive Date: 20080725
  Receipt Date: 20070831
  Transmission Date: 20090109
  Serious: No
  Sender: FDA-Public Use
  Company Number: US-AMGEN-KDL241843

PATIENT
  Sex: Female
  Weight: 71.7 kg

DRUGS (8)
  1. PROCRIT [Suspect]
     Indication: ANAEMIA OF MALIGNANT DISEASE
     Dates: start: 20070823
  2. VITAMIN B-12 [Concomitant]
     Dates: start: 20070801
  3. SYNTHROID [Concomitant]
     Route: 048
  4. LIPITOR [Concomitant]
  5. CALCIUM [Concomitant]
  6. VITAMIN D [Concomitant]
  7. TRAVATAN [Concomitant]
     Route: 047
  8. BONIVA [Concomitant]
     Dates: start: 20070801

REACTIONS (2)
  - ARTHRALGIA [None]
  - INCORRECT DOSE ADMINISTERED [None]
